FAERS Safety Report 6576204-9 (Version None)
Quarter: 2010Q1

REPORT INFORMATION
  Report Type: 
  Country: None (occurrence: None)
  Receive Date: 20100209
  Receipt Date: 20100127
  Transmission Date: 20100710
  Serious: Yes (Death, Life-Threatening, Hospitalization)
  Sender: FDA-Public Use
  Company Number: FR-AMGEN-US095913

PATIENT
  Sex: Female

DRUGS (7)
  1. ENBREL [Suspect]
     Indication: RHEUMATOID ARTHRITIS
     Dosage: UNKNOWN
     Route: 058
     Dates: start: 20030115, end: 20040315
  2. CORTANCYL [Concomitant]
     Indication: RHEUMATOID ARTHRITIS
     Route: 048
     Dates: start: 19870101
  3. PREDNISOLONE [Concomitant]
     Indication: RHEUMATOID ARTHRITIS
     Dosage: 6 MG TOTAL DAILY
     Route: 048
     Dates: start: 19870101
  4. SECTRAL [Concomitant]
     Dosage: UNKNOWN
  5. DI-ANTALVIC [Concomitant]
     Dosage: UNKNOWN
  6. METHOTREXATE [Concomitant]
     Indication: RHEUMATOID ARTHRITIS
     Dates: end: 20041201
  7. FLECAINIDE ACETATE [Concomitant]
     Dosage: UNKNOWN

REACTIONS (1)
  - CREUTZFELDT-JAKOB DISEASE [None]
